FAERS Safety Report 5815434-8 (Version None)
Quarter: 2008Q3

REPORT INFORMATION
  Report Type: 
  Country: None (occurrence: None)
  Receive Date: 20080718
  Receipt Date: 20080707
  Transmission Date: 20090109
  Serious: Yes (Disabling)
  Sender: FDA-Public Use
  Company Number: AU-PFIZER INC-2008056911

PATIENT
  Sex: Male
  Weight: 78 kg

DRUGS (4)
  1. CHANTIX [Suspect]
     Route: 048
     Dates: start: 20080620, end: 20080624
  2. ACIMAX [Concomitant]
     Route: 048
  3. ENDEP [Concomitant]
     Route: 048
  4. EPILIM [Concomitant]
     Route: 048

REACTIONS (8)
  - ABDOMINAL PAIN UPPER [None]
  - AGGRESSION [None]
  - DIARRHOEA [None]
  - MOOD SWINGS [None]
  - NAUSEA [None]
  - PARANOIA [None]
  - PRODUCTIVE COUGH [None]
  - WHEEZING [None]
